FAERS Safety Report 16704371 (Version 3)
Quarter: 2020Q2

REPORT INFORMATION
  Report Type: Spontaneous
  Country: US (occurrence: US)
  Receive Date: 20190814
  Receipt Date: 20200617
  Transmission Date: 20200713
  Serious: Yes (Other)
  Sender: FDA-Public Use
  Company Number: US-SA-2019SA215470

PATIENT

DRUGS (6)
  1. PARAPLATIN [Concomitant]
     Active Substance: CARBOPLATIN
     Indication: OVARIAN CANCER
  2. TAXOL [Concomitant]
     Active Substance: PACLITAXEL
     Indication: OVARIAN CANCER
  3. EFFEXOR [Concomitant]
     Active Substance: VENLAFAXINE HYDROCHLORIDE
     Indication: DEPRESSION
     Dosage: UNK
     Dates: start: 20040101
  4. FLECAINIDE [Concomitant]
     Active Substance: FLECAINIDE
     Dosage: UNK
     Dates: start: 20040101
  5. TAXOTERE [Suspect]
     Active Substance: DOCETAXEL
     Dosage: 150 MG, Q3W
     Route: 042
     Dates: start: 20121128, end: 20121128
  6. TAXOTERE [Suspect]
     Active Substance: DOCETAXEL
     Indication: OVARIAN CANCER
     Dosage: 150 MG, Q3W
     Route: 042
     Dates: start: 20100803, end: 20100803

REACTIONS (2)
  - Psychological trauma [Unknown]
  - Alopecia [Recovering/Resolving]

NARRATIVE: CASE EVENT DATE: 20110802
